FAERS Safety Report 22759527 (Version 4)
Quarter: 2024Q1

REPORT INFORMATION
  Report Type: Spontaneous
  Country: PT (occurrence: PT)
  Receive Date: 20230728
  Receipt Date: 20240207
  Transmission Date: 20240409
  Serious: Yes (Life-Threatening, Hospitalization, Other)
  Sender: FDA-Public Use
  Company Number: PT-ROCHE-3386403

PATIENT
  Age: 70 Year
  Sex: Male

DRUGS (5)
  1. BENDAMUSTINE [Suspect]
     Active Substance: BENDAMUSTINE
     Indication: Chronic lymphocytic leukaemia
     Dosage: UNK(6 CYCLES OF R-BENDA TREATMENT)
     Route: 065
     Dates: end: 201811
  2. RITUXIMAB [Suspect]
     Active Substance: RITUXIMAB
     Indication: Chronic lymphocytic leukaemia
     Dosage: UNK (IN A REGIMEN OF R-BENDA)
     Route: 065
     Dates: end: 201811
  3. RITUXIMAB [Suspect]
     Active Substance: RITUXIMAB
     Dosage: UNK
     Route: 065
     Dates: start: 20230126
  4. VENETOCLAX [Suspect]
     Active Substance: VENETOCLAX
     Indication: Chronic lymphocytic leukaemia
     Dosage: 20 MILLIGRAM
     Route: 048
     Dates: start: 20230126
  5. VENETOCLAX [Suspect]
     Active Substance: VENETOCLAX
     Dosage: 200 MILLIGRAM, ONCE A DAY (I WAS PRESCRIBED 20 MG BUT ADMINISTERED 200 MG)
     Route: 048
     Dates: start: 20230127, end: 20230128

REACTIONS (6)
  - Tumour lysis syndrome [Recovered/Resolved with Sequelae]
  - Overdose [Recovered/Resolved]
  - Altered state of consciousness [Unknown]
  - Depressed level of consciousness [Unknown]
  - Disease progression [Unknown]
  - Off label use [Unknown]

NARRATIVE: CASE EVENT DATE: 20230128
